FAERS Safety Report 4781324-5 (Version None)
Quarter: 2005Q3

REPORT INFORMATION
  Report Type: 
  Country: None (occurrence: None)
  Receive Date: 20050914
  Receipt Date: 20050705
  Transmission Date: 20060218
  Serious: No
  Sender: FDA-Public Use
  Company Number: IND-AE-05-SAN-038

PATIENT
  Age: 80 Year
  Sex: Female
  Weight: 76.2043 kg

DRUGS (7)
  1. SANCTURA [Suspect]
     Indication: HYPERTONIC BLADDER
     Dosage: 20MG BID; ORAL
     Route: 048
     Dates: start: 20050405
  2. PROPRANOLOL [Concomitant]
  3. MAXZIDE [Concomitant]
  4. CRESTOR [Concomitant]
  5. ESTROGEN [Concomitant]
  6. ASPIRIN [Concomitant]
  7. TRAZODONE HCL [Concomitant]

REACTIONS (1)
  - DRUG INEFFECTIVE [None]
